APPROVED DRUG PRODUCT: TRIENTINE HYDROCHLORIDE
Active Ingredient: TRIENTINE HYDROCHLORIDE
Strength: 250MG
Dosage Form/Route: CAPSULE;ORAL
Application: A212238 | Product #001 | TE Code: AB
Applicant: RISING PHARMA HOLDINGS INC
Approved: Feb 20, 2020 | RLD: No | RS: No | Type: RX